FAERS Safety Report 18879963 (Version 11)
Quarter: 2023Q2

REPORT INFORMATION
  Report Type: Spontaneous
  Country: US (occurrence: US)
  Receive Date: 20210211
  Receipt Date: 20230630
  Transmission Date: 20230721
  Serious: No
  Sender: FDA-Public Use
  Company Number: US-BIOGEN-2021BI00977755

PATIENT
  Age: 43 Year
  Sex: Female

DRUGS (1)
  1. TYSABRI [Suspect]
     Active Substance: NATALIZUMAB
     Indication: Multiple sclerosis
     Route: 050
     Dates: start: 20150803

REACTIONS (14)
  - Inappropriate schedule of product administration [Unknown]
  - Product dose omission issue [Unknown]
  - Crying [Not Recovered/Not Resolved]
  - Emotional distress [Not Recovered/Not Resolved]
  - Multiple sclerosis relapse [Not Recovered/Not Resolved]
  - Multiple sclerosis [Not Recovered/Not Resolved]
  - Stress [Not Recovered/Not Resolved]
  - Asthenia [Unknown]
  - Muscular weakness [Unknown]
  - Confusional state [Recovered/Resolved]
  - Memory impairment [Recovered/Resolved]
  - Gait disturbance [Unknown]
  - Muscle spasms [Unknown]
  - Pain in extremity [Not Recovered/Not Resolved]

NARRATIVE: CASE EVENT DATE: 20230627
